FAERS Safety Report 10450964 (Version 2)
Quarter: 2014Q4

REPORT INFORMATION
  Report Type: Spontaneous
  Country: BR (occurrence: BR)
  Receive Date: 20140912
  Receipt Date: 20141110
  Transmission Date: 20150528
  Serious: Yes (Other)
  Sender: FDA-Public Use
  Company Number: BR-PFIZER INC-2014250064

PATIENT
  Age: 59 Year
  Sex: Male

DRUGS (1)
  1. VIAGRA [Suspect]
     Active Substance: SILDENAFIL CITRATE
     Dosage: SOMETIMES SPORADICALLY (NOT CONTINUOUS USE)

REACTIONS (3)
  - Haematospermia [Unknown]
  - Spermatic cord inflammation [Unknown]
  - Prostatic disorder [Unknown]
